FAERS Safety Report 8116464-6 (Version None)
Quarter: 2012Q1

REPORT INFORMATION
  Report Type: 
  Country: None (occurrence: None)
  Receive Date: 20120206
  Receipt Date: 20120131
  Transmission Date: 20120608
  Serious: Yes (Death)
  Sender: FDA-Public Use
  Company Number: JP-CELGENEUS-087-50794-12020255

PATIENT
  Sex: Male
  Weight: 59 kg

DRUGS (9)
  1. ALOXI [Concomitant]
     Route: 065
     Dates: start: 20110404, end: 20110404
  2. SOLU-MEDROL [Concomitant]
     Route: 065
     Dates: start: 20110525, end: 20110527
  3. VIDAZA [Suspect]
     Dosage: 75 MILLIGRAM/SQ. METER
     Route: 041
     Dates: start: 20110516, end: 20110519
  4. ZOSYN [Concomitant]
     Route: 065
     Dates: start: 20110525, end: 20110527
  5. LANSOPRAZOLE [Concomitant]
     Route: 065
     Dates: start: 20110329, end: 20110525
  6. VIDAZA [Suspect]
     Dosage: 75 MILLIGRAM/SQ. METER
     Route: 041
     Dates: start: 20110329, end: 20110406
  7. AMBISOME [Concomitant]
     Route: 065
     Dates: start: 20110520, end: 20110526
  8. ALOXI [Concomitant]
     Route: 065
     Dates: start: 20110329, end: 20110329
  9. MAXIPIME [Concomitant]
     Route: 065
     Dates: start: 20110520, end: 20110524

REACTIONS (3)
  - SEPSIS [None]
  - BLAST CELL COUNT INCREASED [None]
  - FUNGAEMIA [None]
